FAERS Safety Report 6144343-2 (Version None)
Quarter: 2009Q2

REPORT INFORMATION
  Report Type: 
  Country: None (occurrence: None)
  Receive Date: 20090406
  Receipt Date: 20090325
  Transmission Date: 20091009
  Serious: Yes (Death, Life-Threatening, Hospitalization)
  Sender: FDA-Public Use
  Company Number: DE-PFIZER INC-2009171183

PATIENT

DRUGS (7)
  1. SUNITINIB MALATE [Suspect]
     Indication: PANCREATIC CARCINOMA
     Dosage: 50 MG, D1-14
     Route: 048
     Dates: start: 20080627, end: 20090216
  2. GEMCITABINE [Suspect]
     Indication: PANCREATIC CARCINOMA
     Dosage: 1000 MG/M2, D1, D8
     Route: 042
     Dates: start: 20080627, end: 20090213
  3. ALLOPURINOL [Concomitant]
     Dosage: UNK
     Route: 048
     Dates: start: 20090130
  4. LEVOTHYROXINE SODIUM [Concomitant]
     Dosage: UNK
     Route: 048
     Dates: start: 20070501
  5. PANTOZOL [Concomitant]
     Dosage: UNK
     Route: 048
     Dates: start: 20080626
  6. CLEXANE [Concomitant]
     Indication: THROMBOSIS PROPHYLAXIS
     Dosage: UNK
     Route: 058
     Dates: start: 20080627
  7. TORSEMIDE [Concomitant]
     Dosage: UNK
     Route: 048
     Dates: start: 20090120

REACTIONS (3)
  - CARDIAC FAILURE [None]
  - HEPATIC FAILURE [None]
  - MULTI-ORGAN FAILURE [None]
